FAERS Safety Report 6328554-9 (Version None)
Quarter: 2009Q3

REPORT INFORMATION
  Report Type: 
  Country: None (occurrence: None)
  Receive Date: 20090825
  Receipt Date: 20090825
  Transmission Date: 20100115
  Serious: Yes (Other)
  Sender: FDA-Public Use
  Company Number: None

PATIENT
  Age: 57 Year
  Sex: Female
  Weight: 129.7287 kg

DRUGS (1)
  1. LIOTHYRONINE SODIUM [Suspect]
     Dosage: 5MCG 11/2 QD ORAL
     Route: 048
     Dates: start: 20090507

REACTIONS (1)
  - DEPRESSION [None]
